FAERS Safety Report 19236365 (Version 9)
Quarter: 2021Q3

REPORT INFORMATION
  Report Type: Spontaneous
  Country: US (occurrence: US)
  Receive Date: 20210510
  Receipt Date: 20210729
  Transmission Date: 20211014
  Serious: No
  Sender: FDA-Public Use
  Company Number: US-BIOGEN-2020BI00960501

PATIENT
  Age: 37 Year
  Sex: Female

DRUGS (10)
  1. TECFIDERA [Suspect]
     Active Substance: DIMETHYL FUMARATE
     Indication: RELAPSING-REMITTING MULTIPLE SCLEROSIS
     Dosage: TAKE 1 CAPSULE (240MG) BY MOUTH TWICE DAILY (START AFTER COMPLETING ONE WEEK OF 120 MG?DOSAGE)
     Route: 048
     Dates: start: 20201119, end: 20201125
  2. PROVIGIL [Concomitant]
     Active Substance: MODAFINIL
     Route: 065
  3. TECFIDERA [Suspect]
     Active Substance: DIMETHYL FUMARATE
     Dosage: STARTING DOSE
     Route: 048
     Dates: start: 20201112, end: 20201118
  4. BIOTIN [Concomitant]
     Active Substance: BIOTIN
     Route: 065
  5. TECFIDERA [Suspect]
     Active Substance: DIMETHYL FUMARATE
     Dosage: MAINTENANCE DOSE
     Route: 048
     Dates: start: 20201126
  6. MELOXICAM. [Concomitant]
     Active Substance: MELOXICAM
     Route: 065
  7. OXCARBAZEPINE. [Concomitant]
     Active Substance: OXCARBAZEPINE
     Route: 065
  8. BACLOFEN. [Concomitant]
     Active Substance: BACLOFEN
     Route: 065
  9. TECFIDERA [Suspect]
     Active Substance: DIMETHYL FUMARATE
     Dosage: MAINTENANCE DOSE
     Route: 048
     Dates: start: 20201119
  10. CYMBALTA [Concomitant]
     Active Substance: DULOXETINE HYDROCHLORIDE
     Route: 065

REACTIONS (18)
  - Abdominal discomfort [Unknown]
  - Defaecation urgency [Unknown]
  - Sleep apnoea syndrome [Not Recovered/Not Resolved]
  - Alopecia [Not Recovered/Not Resolved]
  - Abdominal pain upper [Not Recovered/Not Resolved]
  - Pyrexia [Unknown]
  - Alanine aminotransferase increased [Not Recovered/Not Resolved]
  - Pruritus [Unknown]
  - Dyspepsia [Unknown]
  - Memory impairment [Not Recovered/Not Resolved]
  - Balance disorder [Not Recovered/Not Resolved]
  - Neuropathy peripheral [Not Recovered/Not Resolved]
  - Hypoaesthesia [Not Recovered/Not Resolved]
  - Flatulence [Not Recovered/Not Resolved]
  - Multiple sclerosis [Unknown]
  - Gastric disorder [Recovered/Resolved]
  - Gastrointestinal disorder [Unknown]
  - Hot flush [Recovered/Resolved]

NARRATIVE: CASE EVENT DATE: 20210101
